FAERS Safety Report 16641797 (Version 1)
Quarter: 2019Q3

REPORT INFORMATION
  Report Type: Spontaneous
  Country: US (occurrence: US)
  Receive Date: 20190726
  Receipt Date: 20190726
  Transmission Date: 20191004
  Serious: Yes (Hospitalization)
  Sender: FDA-Public Use
  Company Number: None

PATIENT
  Age: 61 Year
  Sex: Female

DRUGS (2)
  1. HERCEPTIN 150MG SDV [Concomitant]
     Dates: start: 20180723, end: 20190312
  2. CAPECITABINE. [Suspect]
     Active Substance: CAPECITABINE
     Indication: BREAST CANCER
     Dosage: ?          OTHER FREQUENCY:BID 7 DAYS ON/7 OF;?
     Route: 048
     Dates: start: 20180727, end: 20190714

REACTIONS (1)
  - Surgery [None]

NARRATIVE: CASE EVENT DATE: 20190714
